FAERS Safety Report 9518833 (Version 3)
Quarter: 2014Q2

REPORT INFORMATION
  Report Type: Report from Study
  Country: US (occurrence: US)
  Receive Date: 20130912
  Receipt Date: 20140403
  Transmission Date: 20141212
  Serious: Yes (Hospitalization, Other)
  Sender: FDA-Public Use
  Company Number: US-NOVOPROD-386811

PATIENT
  Age: 3 Year
  Sex: Male
  Weight: 12.7 kg

DRUGS (14)
  1. NORDITROPIN FLEXPRO 3.3 MG/ML [Suspect]
     Indication: HYPOPITUITARISM
     Dosage: 0.38 MG/KG/WK
     Route: 058
     Dates: start: 20120223
  2. NORDITROPIN FLEXPRO 3.3 MG/ML [Suspect]
     Indication: GROWTH HORMONE DEFICIENCY
  3. CORTEF                             /00028601/ [Concomitant]
     Indication: ADRENAL INSUFFICIENCY
     Dosage: 1.25 MG AM + AFTERNOON, 2.5 MG PM, TRIPLE DOSE FOR FEVER GREATER THAN 100.4 OR VOMITTING
  4. CORTEF                             /00028601/ [Concomitant]
     Indication: PYREXIA
  5. CORTEF                             /00028601/ [Concomitant]
     Indication: VOMITING
  6. DDAVP                              /00361901/ [Concomitant]
     Indication: DIABETES INSIPIDUS
     Dosage: 1.2 ML AM, 1.8 ML PM (10MCG/ML)
  7. DIASTAT                            /00017001/ [Concomitant]
     Indication: CONVULSION
     Dosage: 5 MG RECTALLY FOR SEIZURE GREATER THAN 5 MINUTES
     Route: 054
  8. FAMOTIDINE [Concomitant]
     Indication: GASTROOESOPHAGEAL REFLUX DISEASE
     Dosage: 0.8 ML BID (40MG/5 ML)
  9. GLUCAGON [Concomitant]
     Indication: BLOOD GLUCOSE DECREASED
     Dosage: 0.5 MG, UNK
     Route: 030
  10. KEPPRA [Concomitant]
     Indication: CONVULSION
     Dosage: 300 MG BID
  11. KEPPRA [Concomitant]
     Dosage: 40 MG/KG/DAY
     Route: 042
     Dates: start: 20131001
  12. SYNTHROID [Concomitant]
     Indication: HYPOTHYROIDISM
     Dosage: 37.5 UG, QD
     Route: 048
  13. SOLU-CORTEF [Concomitant]
     Indication: ADRENAL INSUFFICIENCY
     Dosage: 50 MG PRN FOR STRESS DOSE
     Route: 030
  14. MIRALAX                            /00754501/ [Concomitant]
     Indication: CONSTIPATION
     Dosage: 8.5 G, PRN

REACTIONS (5)
  - Convulsion [Recovered/Resolved]
  - Loss of consciousness [Recovered/Resolved]
  - Blood glucose decreased [Recovered/Resolved]
  - Convulsion [Recovered/Resolved]
  - Weight decreased [Not Recovered/Not Resolved]
